FAERS Safety Report 6251862-7 (Version None)
Quarter: 2009Q2

REPORT INFORMATION
  Report Type: 
  Country: None (occurrence: None)
  Receive Date: 20090630
  Receipt Date: 20090629
  Transmission Date: 20091009
  Serious: Yes (Other)
  Sender: FDA-Public Use
  Company Number: US-GILEAD-2009-0022563

PATIENT
  Sex: Male
  Weight: 72.64 kg

DRUGS (9)
  1. LETAIRIS [Suspect]
     Indication: PULMONARY ARTERIAL HYPERTENSION
     Route: 048
     Dates: start: 20090520
  2. WARFARIN SODIUM [Concomitant]
  3. INDERAL LA [Concomitant]
  4. TRICOR [Concomitant]
  5. TRAMADOL HCL [Concomitant]
  6. SYNTHROID [Concomitant]
  7. LEXAPRO [Concomitant]
  8. PHENERGAN [Concomitant]
  9. AMBIEN [Concomitant]

REACTIONS (4)
  - ASTHENIA [None]
  - FLUSHING [None]
  - HYPOTENSION [None]
  - NERVOUSNESS [None]
